FAERS Safety Report 5171182-1 (Version None)
Quarter: 2006Q4

REPORT INFORMATION
  Report Type: 
  Country: None (occurrence: None)
  Receive Date: 20061213
  Receipt Date: 20051208
  Transmission Date: 20070319
  Serious: Yes (Hospitalization)
  Sender: FDA-Public Use
  Company Number: US-AMGEN-STX160635

PATIENT
  Sex: Female

DRUGS (2)
  1. ENBREL [Suspect]
     Indication: PSORIASIS
     Dates: start: 20050901, end: 20051109
  2. METHOTREXATE [Concomitant]
     Dates: end: 20051001

REACTIONS (1)
  - PNEUMONITIS CRYPTOCOCCAL [None]
